FAERS Safety Report 4780822-8 (Version None)
Quarter: 2005Q3

REPORT INFORMATION
  Report Type: 
  Country: None (occurrence: None)
  Receive Date: 20050914
  Receipt Date: 20040902
  Transmission Date: 20060218
  Serious: Yes (Death)
  Sender: FDA-Public Use
  Company Number: 150-20785-04090194

PATIENT
  Age: 67 Year
  Sex: Female

DRUGS (1)
  1. THALIDOMIDE - PHARMION (THALIDOMIDE) (CAPSULES) [Suspect]
     Indication: MULTIPLE MYELOMA
     Dosage: 150MG-400MG, DAILY, ORAL
     Route: 048

REACTIONS (2)
  - DEATH [None]
  - DISEASE PROGRESSION [None]
